FAERS Safety Report 7675183-0 (Version None)
Quarter: 2011Q3

REPORT INFORMATION
  Report Type: 
  Country: None (occurrence: None)
  Receive Date: 20110810
  Receipt Date: 20110805
  Transmission Date: 20111222
  Serious: Yes (Hospitalization)
  Sender: FDA-Public Use
  Company Number: FR-TEVA-295318ISR

PATIENT
  Age: 40 Year
  Sex: Male

DRUGS (2)
  1. PAMIDRONATE DISODIUM [Suspect]
     Indication: COMPLEX REGIONAL PAIN SYNDROME
     Route: 042
     Dates: start: 20110505, end: 20110505
  2. HEPARIN SODIUM [Suspect]
     Indication: COMPLEX REGIONAL PAIN SYNDROME
     Route: 042
     Dates: start: 20110505, end: 20110505

REACTIONS (2)
  - OESOPHAGEAL ULCER [None]
  - HAEMATEMESIS [None]
